FAERS Safety Report 10978954 (Version 1)
Quarter: 2015Q2

REPORT INFORMATION
  Report Type: Spontaneous
  Country: US (occurrence: US)
  Receive Date: 20150402
  Receipt Date: 20150402
  Transmission Date: 20150821
  Serious: No
  Sender: FDA-Public Use
  Company Number: US-PFIZER INC-2015108437

PATIENT
  Age: 10 Year
  Sex: Male
  Weight: 20 kg

DRUGS (2)
  1. SPRYCEL [Concomitant]
     Active Substance: DASATINIB
  2. XALKORI [Suspect]
     Active Substance: CRIZOTINIB
     Indication: ANAPLASTIC ASTROCYTOMA
     Dosage: 200 MG, 1X/DAY

REACTIONS (3)
  - General physical health deterioration [Unknown]
  - Dysphagia [Unknown]
  - Product use issue [Unknown]

NARRATIVE: CASE EVENT DATE: 201503
